FAERS Safety Report 13829246 (Version 2)
Quarter: 2017Q4

REPORT INFORMATION
  Report Type: Spontaneous
  Country: US (occurrence: US)
  Receive Date: 20170803
  Receipt Date: 20171211
  Transmission Date: 20180320
  Serious: Yes (Hospitalization, Other)
  Sender: FDA-Public Use
  Company Number: US-009507513-1707USA011048

PATIENT

DRUGS (1)
  1. JANUMET [Suspect]
     Active Substance: METFORMIN HYDROCHLORIDE\SITAGLIPTIN PHOSPHATE
     Indication: TYPE 2 DIABETES MELLITUS
     Dosage: UNK
     Route: 048

REACTIONS (7)
  - Quality of life decreased [Unknown]
  - Incontinence [Unknown]
  - Fear [Unknown]
  - Malaise [Unknown]
  - Fatigue [Unknown]
  - Frustration tolerance decreased [Unknown]
  - Renal impairment [Not Recovered/Not Resolved]
